FAERS Safety Report 21710524 (Version 2)
Quarter: 2023Q2

REPORT INFORMATION
  Report Type: Report from Study
  Country: CA (occurrence: CA)
  Receive Date: 20221212
  Receipt Date: 20230404
  Transmission Date: 20230721
  Serious: Yes (Other)
  Sender: FDA-Public Use
  Company Number: CA-002147023-NVSC2022CA131509

PATIENT
  Age: 61 Year
  Sex: Female

DRUGS (1)
  1. HYRIMOZ [Suspect]
     Active Substance: ADALIMUMAB-ADAZ
     Indication: Crohn^s disease
     Dosage: 40 MG, QW
     Route: 058
     Dates: start: 20220520

REACTIONS (14)
  - Ankylosing spondylitis [Unknown]
  - Diarrhoea [Not Recovered/Not Resolved]
  - Malaise [Unknown]
  - Sacroiliitis [Not Recovered/Not Resolved]
  - Arthralgia [Unknown]
  - Skin wound [Unknown]
  - Abdominal pain [Unknown]
  - Erythema [Unknown]
  - Headache [Not Recovered/Not Resolved]
  - Nausea [Unknown]
  - Rash [Unknown]
  - Tachycardia [Unknown]
  - Injection site haemorrhage [Unknown]
  - Drug ineffective [Unknown]
